FAERS Safety Report 6618186-7 (Version None)
Quarter: 2010Q1

REPORT INFORMATION
  Report Type: 
  Country: None (occurrence: None)
  Receive Date: 20100308
  Receipt Date: 20100204
  Transmission Date: 20100710
  Serious: No
  Sender: FDA-Public Use
  Company Number: JP-ROCHE-688958

PATIENT
  Age: 39 Year
  Sex: Female

DRUGS (1)
  1. TAMIFLU [Suspect]
     Indication: ANTIVIRAL PROPHYLAXIS
     Dosage: FORM: ORAL FORMULATION  (NOT OTHERWISE SPECIFIED)
     Route: 048
     Dates: start: 20091013, end: 20091022

REACTIONS (2)
  - DRUG EXPOSURE DURING PREGNANCY [None]
  - NO ADVERSE EVENT [None]
